FAERS Safety Report 25591019 (Version 9)
Quarter: 2025Q4

REPORT INFORMATION
  Report Type: Report from Study
  Country: CA (occurrence: CA)
  Receive Date: 20250722
  Receipt Date: 20251230
  Transmission Date: 20260118
  Serious: Yes (Other)
  Sender: PFIZER
  Company Number: CA-PFIZER INC-PV202400038045

PATIENT
  Age: 41 Year
  Sex: Female
  Weight: 110.7 kg

DRUGS (41)
  1. ZIRABEV [Suspect]
     Active Substance: BEVACIZUMAB-BVZR
     Indication: Cervix cancer metastatic
     Dosage: 1650 MG, EVERY 3 WEEKS
     Route: 042
     Dates: start: 20240415
  2. ZIRABEV [Suspect]
     Active Substance: BEVACIZUMAB-BVZR
     Dosage: 1650 MG, EVERY 3 WEEKS
     Route: 042
     Dates: start: 20240527
  3. ZIRABEV [Suspect]
     Active Substance: BEVACIZUMAB-BVZR
     Dosage: 1650 MG
     Dates: start: 20240717
  4. ZIRABEV [Suspect]
     Active Substance: BEVACIZUMAB-BVZR
     Dosage: 1650 MG
     Dates: start: 20240717
  5. ZIRABEV [Suspect]
     Active Substance: BEVACIZUMAB-BVZR
     Dosage: 1650 MG
     Dates: start: 20240828
  6. ZIRABEV [Suspect]
     Active Substance: BEVACIZUMAB-BVZR
     Dosage: 1650 MG
     Dates: start: 20241009
  7. ZIRABEV [Suspect]
     Active Substance: BEVACIZUMAB-BVZR
     Dosage: 1650 MG
     Dates: start: 20241009
  8. ZIRABEV [Suspect]
     Active Substance: BEVACIZUMAB-BVZR
     Dosage: 1675 MG, EVERY 3 WEEKS
     Dates: start: 20241120
  9. ZIRABEV [Suspect]
     Active Substance: BEVACIZUMAB-BVZR
     Dosage: 1675 MG, EVERY 3 WEEKS
     Dates: start: 20241211
  10. ZIRABEV [Suspect]
     Active Substance: BEVACIZUMAB-BVZR
     Dosage: 1675 MG, EVERY 3 WEEKS
     Route: 042
     Dates: start: 20250103
  11. ZIRABEV [Suspect]
     Active Substance: BEVACIZUMAB-BVZR
     Dosage: 1675 MG, EVERY 3 WEEKS
     Route: 042
     Dates: start: 20250221
  12. ZIRABEV [Suspect]
     Active Substance: BEVACIZUMAB-BVZR
     Dosage: 1675 MG, EVERY 3 WEEKS
     Route: 042
     Dates: start: 20250314
  13. ZIRABEV [Suspect]
     Active Substance: BEVACIZUMAB-BVZR
     Dosage: 1675 MG, EVERY 3 WEEKS
     Route: 042
     Dates: start: 20250314
  14. ZIRABEV [Suspect]
     Active Substance: BEVACIZUMAB-BVZR
     Dosage: 1675 MG, EVERY 3 WEEKS
     Route: 042
     Dates: start: 20250404
  15. ZIRABEV [Suspect]
     Active Substance: BEVACIZUMAB-BVZR
     Dosage: 1675 MG, EVERY 3 WEEKS
     Route: 042
     Dates: start: 20250404
  16. ZIRABEV [Suspect]
     Active Substance: BEVACIZUMAB-BVZR
     Dosage: 1675 MG, EVERY 3 WEEKS (CYCLE/INFUSION #14)
     Route: 042
     Dates: start: 20250423
  17. ZIRABEV [Suspect]
     Active Substance: BEVACIZUMAB-BVZR
     Dosage: 1675 MG, EVERY 3 WEEKS
     Route: 042
     Dates: start: 20250514
  18. ZIRABEV [Suspect]
     Active Substance: BEVACIZUMAB-BVZR
     Dosage: 1675 MG, EVERY 3 WEEKS
     Route: 042
     Dates: start: 20250514
  19. ZIRABEV [Suspect]
     Active Substance: BEVACIZUMAB-BVZR
     Dosage: 1675 MG, EVERY 3 WEEKS
     Route: 042
     Dates: start: 20250604
  20. ZIRABEV [Suspect]
     Active Substance: BEVACIZUMAB-BVZR
     Dosage: 1675 MG, EVERY 3 WEEKS
     Route: 042
     Dates: start: 20250604
  21. ZIRABEV [Suspect]
     Active Substance: BEVACIZUMAB-BVZR
     Dosage: 1675 MG, EVERY 3 WEEKS (4 VIALS)
     Route: 042
     Dates: start: 20250625
  22. ZIRABEV [Suspect]
     Active Substance: BEVACIZUMAB-BVZR
     Dosage: 1675 MG, EVERY 3 WEEKS
     Route: 042
     Dates: start: 20250625
  23. ZIRABEV [Suspect]
     Active Substance: BEVACIZUMAB-BVZR
     Dosage: 1700 MG, EVERY 3 WEEKS
     Route: 042
     Dates: start: 20250716
  24. ZIRABEV [Suspect]
     Active Substance: BEVACIZUMAB-BVZR
     Dosage: 1700 MG, EVERY 3 WEEKS
     Route: 042
     Dates: start: 20250716
  25. ZIRABEV [Suspect]
     Active Substance: BEVACIZUMAB-BVZR
     Dosage: 1650 MG, EVERY 3 WEEKS (CYCLE 19), RATE:50 ML/HR
     Route: 042
     Dates: start: 20250808
  26. ZIRABEV [Suspect]
     Active Substance: BEVACIZUMAB-BVZR
     Dosage: 1700 MG, EVERY 3 WEEKS INFUSION #20 (X4 VIALS)
     Route: 042
     Dates: start: 20250917
  27. ZIRABEV [Suspect]
     Active Substance: BEVACIZUMAB-BVZR
     Dosage: 1700 MG, EVERY 3 WEEKS INFUSION #20
     Route: 042
     Dates: start: 20250917
  28. ZIRABEV [Suspect]
     Active Substance: BEVACIZUMAB-BVZR
     Dosage: 1700 MG, EVERY 3 WEEKS
     Route: 042
     Dates: start: 20251009
  29. ZIRABEV [Suspect]
     Active Substance: BEVACIZUMAB-BVZR
     Dosage: 1700 MG, EVERY 3 WEEKS
     Route: 042
     Dates: start: 20251009
  30. ZIRABEV [Suspect]
     Active Substance: BEVACIZUMAB-BVZR
     Dosage: 1700 MG, EVERY 3 WEEKS
     Route: 042
     Dates: start: 20251030
  31. ZIRABEV [Suspect]
     Active Substance: BEVACIZUMAB-BVZR
     Dosage: 1700 MG, EVERY 3 WEEKS
     Route: 042
     Dates: start: 20251120
  32. ZIRABEV [Suspect]
     Active Substance: BEVACIZUMAB-BVZR
     Dosage: 1700 MG, EVERY 3 WEEKS
     Route: 042
     Dates: start: 20251120
  33. ZIRABEV [Suspect]
     Active Substance: BEVACIZUMAB-BVZR
     Dosage: 1700 MG, EVERY 3 WEEKS
     Route: 042
     Dates: start: 20251218
  34. ZIRABEV [Suspect]
     Active Substance: BEVACIZUMAB-BVZR
     Dosage: 1700 MG, EVERY 3 WEEKS
     Route: 042
     Dates: start: 20251218
  35. SODIUM CHLORIDE [Concomitant]
     Active Substance: SODIUM CHLORIDE
     Dosage: 10 UNK
  36. SODIUM CHLORIDE [Concomitant]
     Active Substance: SODIUM CHLORIDE
     Dosage: 10 UNK
     Dates: start: 20250808
  37. HEPARIN [Concomitant]
     Active Substance: HEPARIN SODIUM
     Dosage: 100U/ML 5
  38. HEPARIN [Concomitant]
     Active Substance: HEPARIN SODIUM
     Dosage: 100 IU/ML (5)
     Dates: start: 20250808
  39. PIROXICAM [Concomitant]
     Active Substance: PIROXICAM
     Dosage: UNK
  40. AMLODIPINE [Concomitant]
     Active Substance: AMLODIPINE BESYLATE
     Indication: Hypertension
     Dosage: 5 MG, DAILY
     Dates: end: 2025
  41. PERINDOPRIL/AMLODIPINE HCS [Concomitant]
     Indication: Hypertension
     Dosage: UNK
     Dates: start: 2025

REACTIONS (23)
  - Catheter site infection [Recovered/Resolved]
  - Blood pressure fluctuation [Not Recovered/Not Resolved]
  - Fatigue [Not Recovered/Not Resolved]
  - Sleep disorder [Unknown]
  - Rhinorrhoea [Not Recovered/Not Resolved]
  - Sneezing [Not Recovered/Not Resolved]
  - Tongue exfoliation [Unknown]
  - Wound [Not Recovered/Not Resolved]
  - Impaired healing [Not Recovered/Not Resolved]
  - Dry mouth [Unknown]
  - Oropharyngeal pain [Recovering/Resolving]
  - Pyrexia [Recovering/Resolving]
  - Viral infection [Recovering/Resolving]
  - Stomatitis [Recovered/Resolved]
  - Blood pressure diastolic increased [Recovering/Resolving]
  - Blood pressure decreased [Unknown]
  - Blood pressure systolic increased [Unknown]
  - Headache [Unknown]
  - Neck pain [Recovered/Resolved]
  - Blood pressure increased [Not Recovered/Not Resolved]
  - Protein urine present [Unknown]
  - Off label use [Unknown]
  - Inappropriate schedule of product administration [Unknown]

NARRATIVE: CASE EVENT DATE: 20240415
